FAERS Safety Report 8974364 (Version 6)
Quarter: 2013Q2

REPORT INFORMATION
  Report Type: Report from Study
  Country: US (occurrence: US)
  Receive Date: 20121220
  Receipt Date: 20130531
  Transmission Date: 20140414
  Serious: Yes (Hospitalization, Other)
  Sender: FDA-Public Use
  Company Number: US-ASTELLAS-2012US012344

PATIENT
  Age: 60 Year
  Sex: Male
  Weight: 78 kg

DRUGS (29)
  1. BLINDED ERLOTINIB TABLET [Suspect]
     Indication: LARYNGEAL CANCER METASTATIC
     Dosage: 150 MG, UID/QD
     Route: 048
     Dates: start: 20121127, end: 20121130
  2. BLINDED ERLOTINIB TABLET [Suspect]
     Dosage: 100 MG, UID/QD
     Route: 048
     Dates: start: 20121218
  3. DOCETAXEL [Suspect]
     Indication: LARYNGEAL CANCER METASTATIC
     Dosage: 143 MG, UNKNOWN/D
     Route: 042
     Dates: start: 20121127
  4. DOCETAXEL [Suspect]
     Dosage: 75 MG/M2, UNKNOWN/D
     Route: 042
     Dates: start: 20121218
  5. CISPLATIN [Suspect]
     Indication: LARYNGEAL CANCER METASTATIC
     Dosage: UNK
     Route: 065
     Dates: start: 201104
  6. CISPLATIN [Suspect]
     Dosage: 143 MG, UNKNOWN/D
     Route: 042
     Dates: start: 20121127
  7. CISPLATIN [Suspect]
     Dosage: 75 MG/M2, UNKNOWN/D
     Route: 042
     Dates: start: 20121218
  8. FLAGYL /00012501/ [Suspect]
     Indication: CLOSTRIDIUM DIFFICILE INFECTION
     Dosage: UNK
     Route: 065
     Dates: start: 20130102, end: 20130102
  9. ASPIRIN [Concomitant]
     Indication: CARDIAC DISORDER
     Dosage: 1 DF, UID/QD
     Route: 048
  10. MEGACE [Concomitant]
     Indication: APPETITE DISORDER
     Dosage: 1 DF, UID/QD
     Route: 048
  11. DEXAMETHASONE [Concomitant]
     Indication: NAUSEA
     Dosage: 2 DF, Q12 HOURS
     Route: 048
  12. DEXAMETHASONE [Concomitant]
     Indication: VOMITING
  13. CARDIZEM CD [Concomitant]
     Indication: BLOOD PRESSURE
     Dosage: 1 DF, UID/QD
     Route: 048
  14. DOCUSATE [Concomitant]
     Indication: CONSTIPATION
     Dosage: 20 MG/ 5 ML, UNKNOWN/D
     Route: 048
  15. NEXIUM                             /01479302/ [Concomitant]
     Indication: DYSPEPSIA
     Dosage: 1 DF, UID/QD
     Route: 048
  16. ZETIA [Concomitant]
     Indication: BLOOD CHOLESTEROL
     Dosage: 1 DF, UID/QD
     Route: 048
  17. LOPID [Concomitant]
     Indication: BLOOD CHOLESTEROL
     Dosage: 1 DF, BID
     Route: 048
  18. ACETAMINOPHEN W/HYDROCODONE [Concomitant]
     Indication: PAIN
     Dosage: 1 DF, PRN
     Route: 048
  19. TOPROL [Concomitant]
     Indication: BLOOD PRESSURE
     Dosage: 1 DF, UID/QD
     Route: 048
  20. NEULASTA [Concomitant]
     Indication: PROPHYLAXIS
     Dosage: 24-48 HRS AFTER CHEMOTHERAPY
     Route: 058
  21. NEURONTIN [Concomitant]
     Indication: PAIN
     Dosage: 1.5 DF, UNKNOWN/D
     Route: 048
  22. ONDANSETRON [Concomitant]
     Indication: NAUSEA
     Dosage: 1 DF, Q8 HOURS
     Route: 048
  23. ONDANSETRON [Concomitant]
     Indication: VOMITING
  24. OXYCONTIN [Concomitant]
     Indication: PAIN
     Dosage: 15 MG, Q12 HOURS
     Route: 048
  25. PLAVIX [Concomitant]
     Indication: CEREBROVASCULAR ACCIDENT
     Dosage: 1 DF, UID/QD
     Route: 048
  26. SENNA                              /00571901/ [Concomitant]
     Indication: CONSTIPATION
     Dosage: 2 DF, UID/QD
     Route: 048
  27. SYNTHROID [Concomitant]
     Indication: THYROID DISORDER
     Dosage: 150 UG, UID/QD
     Route: 048
  28. TRAZODONE [Concomitant]
     Indication: INSOMNIA
     Dosage: 0.5-1 DF, PRN
     Route: 048
  29. TRAZODONE [Concomitant]
     Indication: ANXIETY

REACTIONS (44)
  - Off label use [Unknown]
  - Hypotension [Recovered/Resolved]
  - Hypotension [Recovered/Resolved]
  - Hypokalaemia [Recovered/Resolved]
  - Dehydration [Recovered/Resolved]
  - Diarrhoea [Recovered/Resolved]
  - Decreased appetite [Recovered/Resolved]
  - Diarrhoea [Recovered/Resolved]
  - Fatigue [Recovered/Resolved]
  - Weight decreased [Unknown]
  - Dehydration [Unknown]
  - Anaemia [Unknown]
  - Febrile neutropenia [Recovered/Resolved]
  - Pneumonia pseudomonas aeruginosa [Recovering/Resolving]
  - Chronic obstructive pulmonary disease [Recovering/Resolving]
  - Nutritional condition abnormal [Not Recovered/Not Resolved]
  - Pneumoperitoneum [Not Recovered/Not Resolved]
  - Hypocalcaemia [Recovered/Resolved]
  - Pancytopenia [Recovering/Resolving]
  - Acute respiratory failure [Recovered/Resolved]
  - Atrial fibrillation [Recovering/Resolving]
  - Hyperparathyroidism secondary [Not Recovered/Not Resolved]
  - Pulmonary oedema [Recovering/Resolving]
  - Renal failure acute [Recovering/Resolving]
  - Dyspnoea [Recovering/Resolving]
  - Productive cough [Recovering/Resolving]
  - Sepsis [Recovered/Resolved]
  - Renal failure acute [Recovered/Resolved]
  - Pain in extremity [Recovered/Resolved]
  - Culture urine positive [Unknown]
  - Musculoskeletal chest pain [Recovered/Resolved]
  - Throat tightness [Recovered/Resolved]
  - Oropharyngeal pain [Recovered/Resolved]
  - Vitamin D deficiency [Recovered/Resolved]
  - Drug eruption [Recovered/Resolved]
  - Vomiting [Recovered/Resolved]
  - Nausea [Recovered/Resolved]
  - Abdominal pain [Unknown]
  - Local swelling [Recovered/Resolved]
  - Cellulitis [Recovered/Resolved]
  - Abdominal pain [Recovered/Resolved]
  - Bradycardia [Recovered/Resolved]
  - Asthenia [Recovered/Resolved]
  - Cough [Not Recovered/Not Resolved]
